FAERS Safety Report 13520648 (Version 2)
Quarter: 2017Q2

REPORT INFORMATION
  Report Type: Spontaneous
  Country: US (occurrence: US)
  Receive Date: 20170508
  Receipt Date: 20170526
  Transmission Date: 20170830
  Serious: Yes (Other)
  Sender: FDA-Public Use
  Company Number: US-TORRENT-00002718

PATIENT
  Age: 11 Year
  Sex: Male
  Weight: 30 kg

DRUGS (7)
  1. ARIPIPRAZOLE. [Suspect]
     Active Substance: ARIPIPRAZOLE
  2. CLONIDINE. [Concomitant]
     Active Substance: CLONIDINE
  3. FENTANYL. [Concomitant]
     Active Substance: FENTANYL
  4. METHYLPHENIDATE HYDROCHLORIDE. [Interacting]
     Active Substance: METHYLPHENIDATE HYDROCHLORIDE
  5. SEVOFLURANE. [Concomitant]
     Active Substance: SEVOFLURANE
  6. ROCURONIUM [Concomitant]
     Active Substance: ROCURONIUM BROMIDE
  7. PROPOFOL. [Interacting]
     Active Substance: PROPOFOL

REACTIONS (4)
  - Off label use [Unknown]
  - Trismus [Recovered/Resolved]
  - Drug interaction [Unknown]
  - Dystonia [Recovered/Resolved]
